FAERS Safety Report 23832046 (Version 5)
Quarter: 2024Q3

REPORT INFORMATION
  Report Type: Spontaneous
  Country: US (occurrence: US)
  Receive Date: 20240508
  Receipt Date: 20240816
  Transmission Date: 20241016
  Serious: Yes (Hospitalization, Other)
  Sender: BRISTOL MYERS SQUIBB
  Company Number: US-BRISTOL-MYERS SQUIBB COMPANY-2024-069492

PATIENT
  Age: 78 Year
  Sex: Female
  Weight: 81.65 kg

DRUGS (6)
  1. LENALIDOMIDE [Suspect]
     Active Substance: LENALIDOMIDE
     Indication: Plasma cell myeloma
     Route: 048
     Dates: start: 20240404
  2. LENALIDOMIDE [Suspect]
     Active Substance: LENALIDOMIDE
     Dosage: D 1-21 Q 28 DAYS
     Route: 048
     Dates: end: 20240529
  3. VELCADE [Concomitant]
     Active Substance: BORTEZOMIB
     Indication: Product used for unknown indication
     Dosage: ROA: INJECTION
  4. VELCADE [Concomitant]
     Active Substance: BORTEZOMIB
     Dosage: ROA: INJECTION
  5. ZOLEDRONIC ACID [Concomitant]
     Active Substance: ZOLEDRONIC ACID
     Indication: Product used for unknown indication
     Dosage: 4/5 MG/ML
     Route: 042
     Dates: start: 20240328
  6. DEXAMETHASONE [Concomitant]
     Active Substance: DEXAMETHASONE
     Route: 048
     Dates: start: 20240501

REACTIONS (13)
  - Atrial fibrillation [Not Recovered/Not Resolved]
  - Hypotension [Recovering/Resolving]
  - Fall [Recovering/Resolving]
  - Asthenia [Recovering/Resolving]
  - Fatigue [Recovering/Resolving]
  - Influenza [Recovering/Resolving]
  - Brain fog [Not Recovered/Not Resolved]
  - White blood cell count decreased [Unknown]
  - Diarrhoea [Unknown]
  - Muscle spasms [Not Recovered/Not Resolved]
  - Memory impairment [Not Recovered/Not Resolved]
  - Aphonia [Not Recovered/Not Resolved]
  - Dyspnoea [Not Recovered/Not Resolved]

NARRATIVE: CASE EVENT DATE: 20240427
